FAERS Safety Report 8106374-2 (Version None)
Quarter: 2012Q1

REPORT INFORMATION
  Report Type: 
  Country: None (occurrence: None)
  Receive Date: 20120202
  Receipt Date: 20120120
  Transmission Date: 20120608
  Serious: Yes (Hospitalization)
  Sender: FDA-Public Use
  Company Number: CA-UCBSA-050201

PATIENT
  Age: 65 Year
  Sex: Female
  Weight: 66.6 kg

DRUGS (11)
  1. OXYCONTIN [Concomitant]
     Indication: PAIN
     Route: 048
  2. PREDNISONE TAB [Concomitant]
     Indication: RHEUMATOID ARTHRITIS
     Route: 048
  3. AMLODIPINE [Concomitant]
  4. TRAZODONE HCL [Concomitant]
  5. BISOPROLOL [Concomitant]
  6. LORAZEPAM [Concomitant]
     Dosage: DOSE 1 MG
  7. OXYCODONE HCL [Concomitant]
     Indication: PAIN
  8. PERCOCET [Concomitant]
  9. PANTOPRAZOLE [Concomitant]
  10. CIMZIA [Suspect]
     Indication: RHEUMATOID ARTHRITIS
     Dosage: 400 MG WKS 0-2-4 THEN 200 MG
     Route: 058
     Dates: start: 20110831
  11. ARAVA [Concomitant]
     Indication: RHEUMATOID ARTHRITIS
     Route: 048

REACTIONS (2)
  - PNEUMONIA [None]
  - BACK DISORDER [None]
